FAERS Safety Report 8539546-3 (Version None)
Quarter: 2012Q3

REPORT INFORMATION
  Report Type: 
  Country: None (occurrence: None)
  Receive Date: 20120726
  Receipt Date: 20120712
  Transmission Date: 20120928
  Serious: Yes (Other)
  Sender: FDA-Public Use
  Company Number: BR-ELI_LILLY_AND_COMPANY-BR201207004087

PATIENT
  Sex: Female
  Weight: 79 kg

DRUGS (2)
  1. CLONAZEPAM [Concomitant]
     Dosage: UNK, UNKNOWN
     Route: 065
  2. CYMBALTA [Suspect]
     Dosage: UNK, QD
     Route: 048

REACTIONS (8)
  - DIZZINESS [None]
  - FORMICATION [None]
  - PALPITATIONS [None]
  - SPEECH DISORDER [None]
  - DYSSTASIA [None]
  - ABDOMINAL PAIN UPPER [None]
  - FEELING ABNORMAL [None]
  - HYPERSOMNIA [None]
